FAERS Safety Report 9307810 (Version 1)
Quarter: 2013Q2

REPORT INFORMATION
  Report Type: Spontaneous
  Country: GB (occurrence: GB)
  Receive Date: 20130524
  Receipt Date: 20130524
  Transmission Date: 20140414
  Serious: Yes (Hospitalization)
  Sender: FDA-Public Use
  Company Number: GB-PFIZER INC-2013157133

PATIENT
  Sex: Male

DRUGS (1)
  1. EPIPEN [Suspect]
     Dosage: 1 DOSAGE FORMS,1 IN 1 TOTAL
     Route: 065

REACTIONS (2)
  - Tachycardia [Unknown]
  - Heart rate irregular [Unknown]
